FAERS Safety Report 23417810 (Version 1)
Quarter: 2024Q1

REPORT INFORMATION
  Report Type: Spontaneous
  Country: GR (occurrence: GR)
  Receive Date: 20240118
  Receipt Date: 20240118
  Transmission Date: 20240410
  Serious: Yes (Other)
  Sender: FDA-Public Use
  Company Number: GR-TEVA-VS-3137864

PATIENT
  Age: 66 Year

DRUGS (2)
  1. SORAFENIB [Suspect]
     Active Substance: SORAFENIB
     Indication: Hepatocellular carcinoma
     Route: 065
  2. UNSPECIFIED INGREDIENT [Suspect]
     Active Substance: UNSPECIFIED INGREDIENT
     Indication: Portal vein thrombosis
     Route: 065

REACTIONS (3)
  - Coagulopathy [Unknown]
  - Haematoma [Unknown]
  - Anaemia [Unknown]
